FAERS Safety Report 9009263 (Version 3)
Quarter: 2014Q1

REPORT INFORMATION
  Report Type: Spontaneous
  Country: US (occurrence: US)
  Receive Date: 20130111
  Receipt Date: 20140214
  Transmission Date: 20141002
  Serious: Yes (Hospitalization)
  Sender: FDA-Public Use
  Company Number: US-GLAXOSMITHKLINE-A1007874A

PATIENT
  Age: 53 Year
  Sex: Female

DRUGS (4)
  1. FLOLAN [Suspect]
     Indication: PULMONARY ARTERIAL HYPERTENSION
     Dosage: 48NGKM CONTINUOUS
     Route: 065
     Dates: start: 19990914
  2. COUMADIN [Concomitant]
  3. REVATIO [Concomitant]
  4. LETAIRIS [Concomitant]

REACTIONS (3)
  - Bronchitis [Unknown]
  - Sinusitis [Unknown]
  - Nasopharyngitis [Unknown]
